FAERS Safety Report 7224907-5 (Version None)
Quarter: 2011Q1

REPORT INFORMATION
  Report Type: 
  Country: None (occurrence: None)
  Receive Date: 20110113
  Receipt Date: 20110106
  Transmission Date: 20110831
  Serious: Yes (Other)
  Sender: FDA-Public Use
  Company Number: DE-MPIJNJ-2010-06247

PATIENT

DRUGS (5)
  1. GRANISETRON HCL [Concomitant]
     Dosage: 1 MG, UNK
  2. VELCADE [Suspect]
     Dosage: UNK
     Route: 042
     Dates: start: 20100930
  3. VELCADE [Suspect]
     Dosage: UNK
     Route: 042
     Dates: start: 20101105
  4. VELCADE [Suspect]
     Indication: MULTIPLE MYELOMA
     Dosage: 1.3 MG/M2, UNK
     Route: 042
     Dates: start: 20100318, end: 20100329
  5. DEXAMETHASONE [Concomitant]
     Dosage: 8 MG, UNK

REACTIONS (4)
  - VISUAL IMPAIRMENT [None]
  - DIZZINESS [None]
  - MEMORY IMPAIRMENT [None]
  - NEUROPATHY PERIPHERAL [None]
